FAERS Safety Report 16382764 (Version 1)
Quarter: 2019Q2

REPORT INFORMATION
  Report Type: Spontaneous
  Country: US (occurrence: US)
  Receive Date: 20190603
  Receipt Date: 20190603
  Transmission Date: 20190711
  Serious: Yes (Life-Threatening, Hospitalization)
  Sender: FDA-Public Use
  Company Number: US-IMPAX LABORATORIES, LLC-2019-IPXL-01152

PATIENT
  Age: 54 Year
  Sex: Female

DRUGS (1)
  1. BACLOFEN. [Suspect]
     Active Substance: BACLOFEN
     Indication: PRODUCT USED FOR UNKNOWN INDICATION
     Dosage: 40 DOSAGE FORM, SINGLE
     Route: 065

REACTIONS (2)
  - Cardiac arrest [Recovered/Resolved]
  - Intentional overdose [Unknown]
